FAERS Safety Report 6574664-0 (Version None)
Quarter: 2010Q1

REPORT INFORMATION
  Report Type: 
  Country: None (occurrence: None)
  Receive Date: 20100202
  Receipt Date: 20100119
  Transmission Date: 20100710
  Serious: Yes (Other)
  Sender: FDA-Public Use
  Company Number: A-US2010-33406

PATIENT
  Age: 30 Year
  Sex: Female

DRUGS (3)
  1. TRACLEER [Suspect]
     Indication: PULMONARY ARTERIAL HYPERTENSION
     Dosage: 125 MG, BID, ORAL
     Route: 048
     Dates: start: 20070615
  2. REVATIO [Concomitant]
  3. WARFARIN SODIUM [Concomitant]

REACTIONS (4)
  - ABORTION INDUCED [None]
  - ABORTION MISSED [None]
  - FOETAL DAMAGE [None]
  - PREGNANCY WITH CONTRACEPTIVE DEVICE [None]
